FAERS Safety Report 18853445 (Version 2)
Quarter: 2021Q1

REPORT INFORMATION
  Report Type: Spontaneous
  Country: JP (occurrence: JP)
  Receive Date: 20210205
  Receipt Date: 20210309
  Transmission Date: 20210420
  Serious: Yes (Death, Other)
  Sender: FDA-Public Use
  Company Number: JP-OTSUKA-2021_003084

PATIENT
  Age: 68 Year
  Sex: Male

DRUGS (4)
  1. SAMSCA [Suspect]
     Active Substance: TOLVAPTAN
     Indication: RENAL DISORDER
  2. FUROSEMIDE. [Concomitant]
     Active Substance: FUROSEMIDE
     Indication: FLUID RETENTION
     Dosage: UNK
     Route: 065
  3. SAMSCA [Suspect]
     Active Substance: TOLVAPTAN
     Indication: URETERIC CANCER
     Dosage: UNK
     Route: 065
  4. SAMSCA [Suspect]
     Active Substance: TOLVAPTAN
     Indication: FLUID RETENTION

REACTIONS (5)
  - Disseminated intravascular coagulation [Unknown]
  - Shock [Unknown]
  - Product use in unapproved indication [Unknown]
  - Death [Fatal]
  - Blood pressure inadequately controlled [Unknown]
